FAERS Safety Report 9330853 (Version 1)
Quarter: 2013Q2

REPORT INFORMATION
  Report Type: Spontaneous
  Country: US (occurrence: None)
  Receive Date: 20130604
  Receipt Date: 20130604
  Transmission Date: 20140414
  Serious: Yes (Disabling)
  Sender: FDA-Public Use
  Company Number: None

PATIENT
  Sex: Female
  Weight: 51.71 kg

DRUGS (1)
  1. PROLIA DENOSUMAB INJECTION [Suspect]
     Dates: start: 20120116, end: 20120801

REACTIONS (1)
  - Bone loss [None]
